FAERS Safety Report 23297188 (Version 2)
Quarter: 2023Q4

REPORT INFORMATION
  Report Type: Spontaneous
  Country: IN (occurrence: IN)
  Receive Date: 20231214
  Receipt Date: 20231222
  Transmission Date: 20240109
  Serious: Yes (Other)
  Sender: FDA-Public Use
  Company Number: IN-JNJFOC-20231219689

PATIENT
  Age: 42 Year
  Sex: Male

DRUGS (4)
  1. SPORANOX [Interacting]
     Active Substance: ITRACONAZOLE
     Indication: Cutaneous sporotrichosis
     Route: 048
  2. SPORANOX [Interacting]
     Active Substance: ITRACONAZOLE
     Route: 048
  3. HYDROCORTISONE [Suspect]
     Active Substance: HYDROCORTISONE
     Indication: Cutaneous sporotrichosis
     Dosage: DOSED 5, 2.5, AND 2.5 MG TO BE TAKEN AT 0800H, 1230H, AND 1630H RESPECTIVELY
     Route: 065
  4. HYDROCORTISONE [Suspect]
     Active Substance: HYDROCORTISONE
     Dosage: 7.5 MG, 5 MG, AND 2.5 MG
     Route: 065

REACTIONS (2)
  - Adrenal insufficiency [Recovering/Resolving]
  - Drug interaction [Recovering/Resolving]
